FAERS Safety Report 4382399-8 (Version None)
Quarter: 2004Q2

REPORT INFORMATION
  Report Type: 
  Country: None (occurrence: None)
  Receive Date: 20040617
  Receipt Date: 20040608
  Transmission Date: 20050107
  Serious: Yes (Death, Life-Threatening)
  Sender: FDA-Public Use
  Company Number: 2004JP001125

PATIENT
  Age: 19 Year
  Sex: Male
  Weight: 41 kg

DRUGS (9)
  1. PROGRAF [Suspect]
     Indication: BONE MARROW TRANSPLANT
     Dosage: 0.60 MG, INTRAVENOUS     SEE IMAGE
     Route: 042
     Dates: start: 20031202, end: 20040421
  2. PROGRAF [Suspect]
     Indication: BONE MARROW TRANSPLANT
     Dosage: 0.60 MG, INTRAVENOUS     SEE IMAGE
     Route: 042
     Dates: start: 20040422, end: 20040426
  3. PROGRAF [Suspect]
     Indication: BONE MARROW TRANSPLANT
     Dosage: 0.60 MG, INTRAVENOUS     SEE IMAGE
     Route: 042
     Dates: start: 20040427, end: 20040430
  4. DENOSINE           ^TANABE^ (GANCICLOVIR) [Concomitant]
  5. MEROPEN (MEROPENEM) [Concomitant]
  6. SOLU-MEDROL [Concomitant]
  7. FUNGUARD (MICAFUNGIN) [Concomitant]
  8. TAGAMET           FOR INJECTION (CIMETIDINE HYDROCHLORIDE) [Concomitant]
  9. STRONG NEO-MINOPHAGEN C (AMINOACETIC ACID, GLYCYRRHIZIC ACID, CYSTEINE [Concomitant]

REACTIONS (11)
  - BLINDNESS [None]
  - BLOOD BILIRUBIN INCREASED [None]
  - BLOOD PRESSURE DECREASED [None]
  - CEREBRAL HAEMORRHAGE [None]
  - CEREBRAL INFARCTION [None]
  - CONVULSION [None]
  - GASTROINTESTINAL HAEMORRHAGE [None]
  - GRAFT VERSUS HOST DISEASE [None]
  - HEPATIC FAILURE [None]
  - HISTIOCYTOSIS HAEMATOPHAGIC [None]
  - LEUKOENCEPHALOPATHY [None]
